FAERS Safety Report 12737439 (Version 1)
Quarter: 2016Q3

REPORT INFORMATION
  Report Type: Spontaneous
  Country: US (occurrence: US)
  Receive Date: 20160912
  Receipt Date: 20160912
  Transmission Date: 20161109
  Serious: No
  Sender: FDA-Public Use
  Company Number: US-TEVA-678818USA

PATIENT
  Sex: Male
  Weight: 74.46 kg

DRUGS (3)
  1. NUVIGIL [Suspect]
     Active Substance: ARMODAFINIL
     Route: 065
     Dates: start: 201511
  2. NUVIGIL [Suspect]
     Active Substance: ARMODAFINIL
     Route: 065
  3. NUVIGIL [Suspect]
     Active Substance: ARMODAFINIL
     Dosage: 5 DAYS A WEEK
     Route: 065

REACTIONS (2)
  - Irritability [Recovered/Resolved]
  - Dizziness [Recovered/Resolved]
